FAERS Safety Report 12948512 (Version 1)
Quarter: 2016Q4

REPORT INFORMATION
  Report Type: Spontaneous
  Country: US (occurrence: US)
  Receive Date: 20161116
  Receipt Date: 20161116
  Transmission Date: 20170207
  Serious: No
  Sender: FDA-Public Use
  Company Number: US-BAUSCH-BL-2016-014900

PATIENT
  Sex: Female
  Weight: 57.66 kg

DRUGS (1)
  1. LOTEMAX [Suspect]
     Active Substance: LOTEPREDNOL ETABONATE
     Indication: DRY EYE
     Dosage: AS DIRECTED
     Route: 061
     Dates: start: 20160608, end: 20160608

REACTIONS (3)
  - Off label use [Recovered/Resolved]
  - Eye swelling [Recovered/Resolved]
  - Eyelid margin crusting [Recovered/Resolved]

NARRATIVE: CASE EVENT DATE: 20160608
